FAERS Safety Report 23411423 (Version 1)
Quarter: 2024Q1

REPORT INFORMATION
  Report Type: Spontaneous
  Country: CN (occurrence: CN)
  Receive Date: 20240117
  Receipt Date: 20240117
  Transmission Date: 20240410
  Serious: Yes (Hospitalization)
  Sender: FDA-Public Use
  Company Number: CN-PFIZER INC-PV202400006040

PATIENT
  Age: 11 Year
  Sex: Female

DRUGS (2)
  1. EPIRUBICIN HYDROCHLORIDE [Suspect]
     Active Substance: EPIRUBICIN HYDROCHLORIDE
     Indication: Acute lymphocytic leukaemia
     Dosage: 25 MG, 1X/DAY
     Route: 041
     Dates: start: 20231228, end: 20231229
  2. VINDESINE SULFATE [Suspect]
     Active Substance: VINDESINE SULFATE
     Indication: Acute lymphocytic leukaemia
     Dosage: 3 MG, 1X/DAY
     Route: 041
     Dates: start: 20231228, end: 20231229

REACTIONS (2)
  - Myelosuppression [Recovering/Resolving]
  - Abdominal discomfort [Recovering/Resolving]

NARRATIVE: CASE EVENT DATE: 20231228
